FAERS Safety Report 17244730 (Version 1)
Quarter: 2020Q1

REPORT INFORMATION
  Report Type: Spontaneous
  Country: US (occurrence: US)
  Receive Date: 20200107
  Receipt Date: 20200107
  Transmission Date: 20200409
  Serious: Yes (Hospitalization, Disabling, Other)
  Sender: FDA-Public Use
  Company Number: US-MICRO LABS LIMITED-ML2020-00099

PATIENT
  Age: 32 Year
  Sex: Female

DRUGS (8)
  1. DIPHENHYDRAMINE HYDROCHLORIDE. [Suspect]
     Active Substance: DIPHENHYDRAMINE HYDROCHLORIDE
     Indication: ANAPHYLACTIC REACTION
     Dosage: REPEAT DIPHENHYDRAMINE WAS ADMINISTERED IN EMERGENCY DEPARTMENT
  2. BUPIVACAINE. [Concomitant]
     Active Substance: BUPIVACAINE
     Dosage: 0.25%
  3. EPINEPHRINE. [Suspect]
     Active Substance: EPINEPHRINE
  4. MIFEPRISTONE [Concomitant]
     Active Substance: MIFEPRISTONE
     Route: 048
  5. RANITIDINE. [Suspect]
     Active Substance: RANITIDINE
     Indication: ANAPHYLACTIC REACTION
  6. GLYCOPYRROLATE. [Suspect]
     Active Substance: GLYCOPYRROLATE
     Indication: ANAPHYLACTIC REACTION
  7. DEXAMETHASONE. [Suspect]
     Active Substance: DEXAMETHASONE
     Indication: ANAPHYLACTIC REACTION
  8. EPINEPHRINE. [Suspect]
     Active Substance: EPINEPHRINE
     Indication: ANAPHYLACTIC REACTION
     Dosage: 3 ADDITIONAL DOSES OF EPINEPHRINE IN EMERGENCY DEPARTMENT
     Route: 030

REACTIONS (1)
  - Drug ineffective [Unknown]
